FAERS Safety Report 23996914 (Version 1)
Quarter: 2024Q2

REPORT INFORMATION
  Report Type: Report from Study
  Country: BR (occurrence: BR)
  Receive Date: 20240620
  Receipt Date: 20240620
  Transmission Date: 20240715
  Serious: Yes (Other)
  Sender: FDA-Public Use
  Company Number: BR-BIOGEN-2024BI01269855

PATIENT
  Age: 46 Year
  Sex: Male
  Weight: 45 kg

DRUGS (1)
  1. SPINRAZA [Suspect]
     Active Substance: NUSINERSEN
     Indication: Spinal muscular atrophy
     Dosage: 12 MG/5ML
     Route: 050
     Dates: start: 20240304

REACTIONS (3)
  - Pulmonary oedema [Recovered/Resolved with Sequelae]
  - Post procedural discomfort [Recovered/Resolved]
  - Hypersensitivity [Not Recovered/Not Resolved]

NARRATIVE: CASE EVENT DATE: 20240401
